FAERS Safety Report 7368235-6 (Version None)
Quarter: 2011Q1

REPORT INFORMATION
  Report Type: 
  Country: None (occurrence: None)
  Receive Date: 20110323
  Receipt Date: 20110321
  Transmission Date: 20110831
  Serious: No
  Sender: FDA-Public Use
  Company Number: US-PFIZER INC-2011062267

PATIENT
  Sex: Male
  Weight: 71.655 kg

DRUGS (1)
  1. ADVIL LIQUI-GELS [Suspect]
     Indication: HYPERSENSITIVITY
     Dosage: 200 MG, DAILY
     Route: 048
     Dates: start: 20110201, end: 20110313

REACTIONS (1)
  - ABDOMINAL PAIN UPPER [None]
